FAERS Safety Report 5139632-4 (Version None)
Quarter: 2006Q4

REPORT INFORMATION
  Report Type: 
  Country: None (occurrence: None)
  Receive Date: 20061023
  Receipt Date: 20061009
  Transmission Date: 20070319
  Serious: Yes (Hospitalization)
  Sender: FDA-Public Use
  Company Number: US200610001582

PATIENT
  Age: 82 Year
  Sex: Female

DRUGS (3)
  1. FORTEO [Suspect]
     Indication: OSTEOPOROSIS
     Dates: start: 20050201
  2. EVISTA [Suspect]
     Indication: OSTEOPOROSIS
  3. FORTEO [Concomitant]

REACTIONS (5)
  - CARDIAC PACEMAKER INSERTION [None]
  - CYSTITIS [None]
  - MALAISE [None]
  - PHARMACEUTICAL PRODUCT COMPLAINT [None]
  - VISUAL ACUITY REDUCED [None]
